FAERS Safety Report 10073526 (Version 1)
Quarter: 2014Q2

REPORT INFORMATION
  Report Type: Report from Study
  Country: GB (occurrence: GB)
  Receive Date: 20140411
  Receipt Date: 20140411
  Transmission Date: 20141212
  Serious: Yes (Hospitalization)
  Sender: FDA-Public Use
  Company Number: GB-MERCK-1310GBR002965

PATIENT
  Age: 69 Year
  Sex: Female
  Weight: 64 kg

DRUGS (9)
  1. VORINOSTAT [Suspect]
     Indication: ACUTE MYELOID LEUKAEMIA
     Dosage: LAST DOSE GIVEN: 300.0; CYCLE 2
     Route: 048
     Dates: start: 20130619, end: 20130723
  2. VORINOSTAT [Suspect]
     Dosage: LAST DOSE GIVEN: 300.0; CYCLE 7
     Route: 048
     Dates: end: 20131210
  3. 5-AZACYTIDINE [Suspect]
     Indication: ACUTE MYELOID LEUKAEMIA
     Dosage: DOSE LAST GIVEN: 145 MG, CYCLE 2
     Route: 058
     Dates: start: 20130617, end: 20130723
  4. 5-AZACYTIDINE [Suspect]
     Dosage: DOSE LAST GIVEN: 135 MG, CYCLE 10
     Route: 058
     Dates: end: 20140305
  5. ONDANSETRON HYDROCHLORIDE [Suspect]
     Dosage: DOSE LAST GIVEN: 8 MG, TABLET
     Route: 048
     Dates: start: 20130617, end: 20140311
  6. DOMPERIDONE [Concomitant]
     Indication: PROPHYLAXIS OF NAUSEA AND VOMITING
     Dosage: UNK
     Dates: start: 20140203, end: 20140314
  7. CIPROFLOXACIN [Concomitant]
     Indication: ANTIBIOTIC THERAPY
     Dosage: UNK
     Dates: start: 20130617
  8. ACYCLOVIR [Concomitant]
     Indication: ANTIVIRAL PROPHYLAXIS
     Dosage: UNK
     Dates: start: 20130617
  9. FLUCONAZOLE [Concomitant]
     Indication: ANTIFUNGAL PROPHYLAXIS
     Dosage: UNK
     Dates: start: 20130617

REACTIONS (4)
  - Acute myeloid leukaemia [Recovered/Resolved]
  - Chronic obstructive pulmonary disease [Recovered/Resolved]
  - Constipation [Recovered/Resolved]
  - Headache [Not Recovered/Not Resolved]
